FAERS Safety Report 15369297 (Version 1)
Quarter: 2018Q3

REPORT INFORMATION
  Report Type: Spontaneous
  Country: PT (occurrence: PT)
  Receive Date: 20180911
  Receipt Date: 20180911
  Transmission Date: 20181010
  Serious: Yes (Hospitalization, Other)
  Sender: FDA-Public Use
  Company Number: NOD-2018-000057

PATIENT
  Age: 69 Year
  Sex: Female

DRUGS (6)
  1. PANTOPRAZOLE [Suspect]
     Active Substance: PANTOPRAZOLE
     Dosage: UNKNOWN
     Route: 065
  2. ALISKIREN [Suspect]
     Active Substance: ALISKIREN
     Dosage: UNKNOWN
     Route: 065
  3. ALISKIREN [Interacting]
     Active Substance: ALISKIREN
     Indication: HYPERTENSION
  4. OLMESARTAN [Interacting]
     Active Substance: OLMESARTAN
     Dosage: UNKNOWN
     Route: 065
  5. OLMESARTAN [Interacting]
     Active Substance: OLMESARTAN
     Indication: HYPERTENSION
  6. PANTOPRAZOLE [Suspect]
     Active Substance: PANTOPRAZOLE
     Indication: GASTROOESOPHAGEAL REFLUX DISEASE

REACTIONS (9)
  - Deep vein thrombosis [Unknown]
  - Sprue-like enteropathy [Recovered/Resolved]
  - Metabolic acidosis [Recovering/Resolving]
  - Hypovolaemic shock [Recovered/Resolved]
  - Dehydration [Recovering/Resolving]
  - Diarrhoea [Recovered/Resolved]
  - Gastrointestinal disorder [Recovered/Resolved]
  - Drug interaction [Unknown]
  - Acute kidney injury [Recovered/Resolved]
